FAERS Safety Report 11635529 (Version 1)
Quarter: 2015Q4

REPORT INFORMATION
  Report Type: Report from Study
  Country: CO (occurrence: CO)
  Receive Date: 20151016
  Receipt Date: 20151016
  Transmission Date: 20160304
  Serious: Yes (Other)
  Sender: FDA-Public Use
  Company Number: CO-ABBVIE-15K-036-1481845-00

PATIENT
  Age: 47 Year
  Sex: Male

DRUGS (2)
  1. LOSARTAN. [Concomitant]
     Active Substance: LOSARTAN
     Indication: PRODUCT USED FOR UNKNOWN INDICATION
  2. HUMIRA [Suspect]
     Active Substance: ADALIMUMAB
     Indication: ANKYLOSING SPONDYLITIS
     Route: 058
     Dates: start: 20090722, end: 20150924

REACTIONS (4)
  - Pain [Recovered/Resolved]
  - Limb asymmetry [Recovered/Resolved]
  - Activities of daily living impaired [Recovered/Resolved]
  - Limb deformity [Recovered/Resolved]

NARRATIVE: CASE EVENT DATE: 20100605
